FAERS Safety Report 7427790-8 (Version None)
Quarter: 2011Q2

REPORT INFORMATION
  Report Type: 
  Country: None (occurrence: None)
  Receive Date: 20110421
  Receipt Date: 20100128
  Transmission Date: 20111010
  Serious: No
  Sender: FDA-Public Use
  Company Number: US-BAYER-201012905NA

PATIENT
  Age: 31 Year
  Sex: Female
  Weight: 96.818 kg

DRUGS (1)
  1. YAZ [Suspect]
     Indication: CONTRACEPTION
     Dosage: 1 TAB / DAY
     Dates: start: 20091227

REACTIONS (1)
  - GENITAL HAEMORRHAGE [None]
